FAERS Safety Report 6228064-3 (Version None)
Quarter: 2009Q2

REPORT INFORMATION
  Report Type: 
  Country: None (occurrence: None)
  Receive Date: 20090612
  Receipt Date: 20090608
  Transmission Date: 20091009
  Serious: Yes (Hospitalization)
  Sender: FDA-Public Use
  Company Number: US-MERCK-0906USA01459

PATIENT
  Age: 59 Year
  Sex: Female

DRUGS (5)
  1. VYTORIN [Suspect]
     Indication: BLOOD CHOLESTEROL
     Route: 048
     Dates: start: 20050101
  2. XANAX [Concomitant]
     Route: 065
  3. NORTRIPTYLINE [Concomitant]
     Route: 065
  4. RISPERDAL [Concomitant]
     Route: 065
  5. TRICOR [Concomitant]
     Route: 065

REACTIONS (3)
  - ASTHENIA [None]
  - MENTAL DISORDER [None]
  - MUSCULAR WEAKNESS [None]
